FAERS Safety Report 24303790 (Version 3)
Quarter: 2024Q4

REPORT INFORMATION
  Report Type: Spontaneous
  Country: GR (occurrence: GR)
  Receive Date: 20240910
  Receipt Date: 20241230
  Transmission Date: 20250114
  Serious: Yes (Death, Other)
  Sender: INCYTE
  Company Number: GR-002147023-NVSC2024GR179503

PATIENT

DRUGS (2)
  1. RUXOLITINIB [Suspect]
     Active Substance: RUXOLITINIB
     Indication: Polycythaemia vera
     Dosage: UNK
     Route: 065
  2. HYDROXYUREA [Suspect]
     Active Substance: HYDROXYUREA
     Indication: Polycythaemia vera
     Dosage: UNK
     Route: 065

REACTIONS (3)
  - Drug intolerance [Unknown]
  - Metastatic squamous cell carcinoma [Fatal]
  - Squamous cell carcinoma [Fatal]
